FAERS Safety Report 5932055-7 (Version None)
Quarter: 2008Q4

REPORT INFORMATION
  Report Type: 
  Country: None (occurrence: None)
  Receive Date: 20081027
  Receipt Date: 20081015
  Transmission Date: 20090506
  Serious: Yes (Other)
  Sender: FDA-Public Use
  Company Number: NL-PFIZER INC-2008088764

PATIENT
  Sex: Female
  Weight: 55 kg

DRUGS (10)
  1. CHANTIX [Suspect]
     Indication: SMOKING CESSATION THERAPY
     Route: 048
     Dates: start: 20080801
  2. DICLOFENAC [Concomitant]
  3. OXAZEPAM [Concomitant]
  4. EFFEXOR [Concomitant]
  5. CLONIDINE [Concomitant]
  6. RIVOTRIL [Concomitant]
  7. CLONAZEPAM [Concomitant]
  8. AERIUS [Concomitant]
  9. RANITIDINE [Concomitant]
  10. DOMPERIDONE [Concomitant]

REACTIONS (3)
  - CONSTIPATION [None]
  - DEPRESSION [None]
  - SUICIDAL IDEATION [None]
